FAERS Safety Report 24204602 (Version 1)
Quarter: 2024Q3

REPORT INFORMATION
  Report Type: Spontaneous
  Country: CA (occurrence: CA)
  Receive Date: 20240813
  Receipt Date: 20240813
  Transmission Date: 20241016
  Serious: Yes (Other)
  Sender: PFIZER
  Company Number: CA-PFIZER INC-PV202400077149

PATIENT
  Age: 52 Year
  Sex: Female
  Weight: 98 kg

DRUGS (6)
  1. ZIRABEV [Suspect]
     Active Substance: BEVACIZUMAB-BVZR
     Indication: Glioblastoma
     Dosage: 980 MG, EVERY 2 WEEKS
     Route: 042
     Dates: start: 20240610
  2. ZIRABEV [Suspect]
     Active Substance: BEVACIZUMAB-BVZR
     Dosage: 980 MG, EVERY 2 WEEKS
     Route: 042
     Dates: start: 20240610
  3. ZIRABEV [Suspect]
     Active Substance: BEVACIZUMAB-BVZR
     Dosage: 980 MG, EVERY 2 WEEKS
     Route: 042
     Dates: start: 20240722
  4. ZIRABEV [Suspect]
     Active Substance: BEVACIZUMAB-BVZR
     Dosage: 980 MG, EVERY 2 WEEKS
     Route: 042
     Dates: start: 20240722
  5. ZIRABEV [Suspect]
     Active Substance: BEVACIZUMAB-BVZR
     Dosage: 980 MG, EVERY 2 WEEKS
     Route: 042
     Dates: start: 20240806
  6. ZIRABEV [Suspect]
     Active Substance: BEVACIZUMAB-BVZR
     Dosage: 980 MG, EVERY 2 WEEKS
     Route: 042
     Dates: start: 20240806

REACTIONS (8)
  - Weight increased [Not Recovered/Not Resolved]
  - Blood pressure fluctuation [Unknown]
  - Mobility decreased [Unknown]
  - Peripheral swelling [Unknown]
  - Fatigue [Unknown]
  - Oedema [Not Recovered/Not Resolved]
  - Vein rupture [Unknown]
  - Poor venous access [Unknown]

NARRATIVE: CASE EVENT DATE: 20240101
